FAERS Safety Report 7430383-X (Version None)
Quarter: 2011Q2

REPORT INFORMATION
  Report Type: 
  Country: None (occurrence: None)
  Receive Date: 20110421
  Receipt Date: 20100706
  Transmission Date: 20111010
  Serious: No
  Sender: FDA-Public Use
  Company Number: US-ASTRAZENECA-2010SE31422

PATIENT
  Age: 66 Year
  Sex: Male
  Weight: 93 kg

DRUGS (6)
  1. METOPROLOL SUCCINATE [Suspect]
     Indication: ATRIAL FIBRILLATION
     Route: 048
     Dates: start: 20100501
  2. HYDROCHLOROTHIAZIDE [Concomitant]
  3. ASPIRIN [Concomitant]
  4. METOPROLOL SUCCINATE [Suspect]
     Route: 048
     Dates: start: 20100501
  5. VYTORIN [Concomitant]
  6. LISINOPRIL [Concomitant]

REACTIONS (2)
  - THERAPEUTIC RESPONSE UNEXPECTED WITH DRUG SUBSTITUTION [None]
  - ATRIAL FIBRILLATION [None]
